FAERS Safety Report 13704487 (Version 3)
Quarter: 2017Q3

REPORT INFORMATION
  Report Type: Report from Study
  Country: FR (occurrence: FR)
  Receive Date: 20170630
  Receipt Date: 20170802
  Transmission Date: 20171127
  Serious: Yes (Death, Hospitalization)
  Sender: FDA-Public Use
  Company Number: FR-ROCHE-1954677

PATIENT
  Age: 73 Year
  Sex: Male
  Weight: 60 kg

DRUGS (10)
  1. INNOHEP [Concomitant]
     Active Substance: TINZAPARIN SODIUM
  2. DIPROSALIC [Concomitant]
     Active Substance: BETAMETHASONE DIPROPIONATE
  3. GAVISCON (ALGINIC ACID) [Concomitant]
     Route: 048
  4. STILNOX [Concomitant]
     Active Substance: ZOLPIDEM TARTRATE
     Route: 048
  5. COBIMETINIB. [Suspect]
     Active Substance: COBIMETINIB
     Indication: MALIGNANT MELANOMA
     Dosage: DATE OF MOST RECENT DOSE PRIOR TO EVENT ONSET: 07/JUN/2017?DATE OF LAST RECENT DOSE PRIOR TO EVENT O
     Route: 048
     Dates: start: 20170607
  6. VEMURAFENIB. [Suspect]
     Active Substance: VEMURAFENIB
     Indication: MALIGNANT MELANOMA
     Dosage: DATE OF MOST RECENT DOSE PRIOR TO EVENT ONSET: 07/JUN/2017?DATE OF LAST RECENT DOSE PRIOR TO EVENT O
     Route: 048
     Dates: start: 20170607
  7. DAIVONEX [Concomitant]
     Active Substance: CALCIPOTRIENE
  8. EPINITRIL [Concomitant]
     Active Substance: NITROGLYCERIN
     Route: 048
  9. EUPANTOL [Concomitant]
     Active Substance: PANTOPRAZOLE SODIUM
     Route: 048
  10. UVEDOSE [Concomitant]
     Active Substance: CHOLECALCIFEROL

REACTIONS (3)
  - Hypotension [Fatal]
  - General physical health deterioration [Unknown]
  - General physical health deterioration [Recovered/Resolved]

NARRATIVE: CASE EVENT DATE: 20170608
